FAERS Safety Report 8439245 (Version 2)
Quarter: 2013Q2

REPORT INFORMATION
  Report Type: Spontaneous
  Country: US (occurrence: None)
  Receive Date: 20120104
  Receipt Date: 20120508
  Transmission Date: 20140414
  Serious: Yes (Other)
  Sender: FDA-Public Use
  Company Number: 2011HGS-002826

PATIENT
  Age: 30 Year
  Sex: Female
  Weight: 68.04 kg

DRUGS (5)
  1. BENLYSTA [Suspect]
     Indication: SYSTEMIC LUPUS ERYTHEMATOSUS
     Route: 041
     Dates: start: 20111010
  2. PLAQUENIL (HYDROXYCHLOROQUINE SULFATE) (HYDROXYCHLOROQUINE SULFATE) [Concomitant]
  3. DOXYCYCLINE (DOXYCYCLINE) (DOXYCYCLINE) [Concomitant]
  4. DEPO PROVERA (MEDROXYPROGESTERONE ACETATE) (MEDROXYPROGESTERONE ACETATE) [Concomitant]
  5. THALIDOMIDE (THALIDOMIDE) (THALIDOMIDE) [Concomitant]

REACTIONS (1)
  - CHEST DISCOMFORT [None]
